FAERS Safety Report 4580629-0 (Version None)
Quarter: 2005Q1

REPORT INFORMATION
  Report Type: 
  Country: None (occurrence: None)
  Receive Date: 20050214
  Receipt Date: 20040428
  Transmission Date: 20050727
  Serious: No
  Sender: FDA-Public Use
  Company Number: US-GLAXOSMITHKLINE-A0508753A

PATIENT
  Age: 20 Year
  Sex: Female

DRUGS (3)
  1. LAMICTAL [Suspect]
     Indication: BIPOLAR DISORDER
     Dosage: 25MG PER DAY
     Route: 048
     Dates: start: 20040414
  2. OLANZAPINE [Concomitant]
  3. LITHIUM [Concomitant]

REACTIONS (3)
  - DRY SKIN [None]
  - MOUTH ULCERATION [None]
  - PRURITUS [None]
